FAERS Safety Report 11137566 (Version 1)
Quarter: 2015Q2

REPORT INFORMATION
  Report Type: Report from Study
  Country: GB (occurrence: GB)
  Receive Date: 20150526
  Receipt Date: 20150526
  Transmission Date: 20150821
  Serious: Yes (Hospitalization)
  Sender: FDA-Public Use
  Company Number: PHHY2015GB058824

PATIENT
  Age: 76 Year
  Sex: Female
  Weight: 49 kg

DRUGS (5)
  1. ONDANSETRON [Suspect]
     Active Substance: ONDANSETRON
     Indication: GASTRIC CANCER
     Route: 042
  2. XELODA [Suspect]
     Active Substance: CAPECITABINE
     Indication: GASTRIC CANCER
     Dosage: MOST RECENT ADMINISTRATION: 13 OCT 09
     Route: 048
  3. EPIRUBICIN [Suspect]
     Active Substance: EPIRUBICIN
     Indication: GASTRIC CANCER
     Dosage: MOST RECENT ADMINISTRATION: 13 OCT 09, REPORTED DOSE: 75
     Route: 042
     Dates: start: 20090918
  4. AVASTIN [Suspect]
     Active Substance: BEVACIZUMAB
     Indication: GASTRIC CANCER
     Dosage: MOST RECENT ADMINISTRATION: 13 OCT 09
     Route: 042
  5. CISPLATIN. [Suspect]
     Active Substance: CISPLATIN
     Indication: GASTRIC CANCER
     Dosage: MOST RECENT ADMINISRATION: 13 OCT 09, REPORTED DOSE: 90
     Route: 042
     Dates: start: 20090918

REACTIONS (1)
  - Abdominal pain [Not Recovered/Not Resolved]

NARRATIVE: CASE EVENT DATE: 20091027
